FAERS Safety Report 6793934-4 (Version None)
Quarter: 2010Q2

REPORT INFORMATION
  Report Type: 
  Country: None (occurrence: None)
  Receive Date: 20100624
  Receipt Date: 20041123
  Transmission Date: 20101027
  Serious: Yes (Hospitalization)
  Sender: FDA-Public Use
  Company Number: US-PFIZER INC-23100209

PATIENT
  Age: 64 Year
  Sex: Female

DRUGS (14)
  1. ARGATROBAN [Suspect]
     Route: 042
     Dates: start: 20041103, end: 20041103
  2. POSACONAZOLE [Suspect]
     Dosage: FREQUENCY:  BID
     Route: 048
     Dates: start: 20040907
  3. PRAVACHOL [Concomitant]
  4. VALACYCLOVIR [Concomitant]
     Dosage: FREQUENCY:  QOD
     Route: 048
  5. SENNA [Concomitant]
     Indication: CONSTIPATION
     Dosage: FREQUENCY:  QD
     Route: 048
  6. COLACE [Concomitant]
     Indication: CONSTIPATION
     Dosage: FREQUENCY:  BID
  7. ASPIRIN [Concomitant]
  8. PREDNISONE [Concomitant]
  9. NEPHRO-VITE [Concomitant]
     Indication: MEDICAL DIET
     Dosage: FREQUENCY:  QD
     Route: 048
  10. PROTONIX [Concomitant]
  11. ALLEGRA [Concomitant]
  12. TACROLIMUS [Concomitant]
     Dosage: FREQUENCY:  QD
  13. TACROLIMUS [Concomitant]
     Dosage: FREQUENCY:  QHS
  14. CELLCEPT [Concomitant]
     Dosage: FREQUENCY:  BID
     Route: 048

REACTIONS (1)
  - GASTROINTESTINAL HAEMORRHAGE [None]
